FAERS Safety Report 4551678-3 (Version None)
Quarter: 2005Q1

REPORT INFORMATION
  Report Type: 
  Country: None (occurrence: None)
  Receive Date: 20050111
  Receipt Date: 20041229
  Transmission Date: 20050727
  Serious: Yes (Other)
  Sender: FDA-Public Use
  Company Number: 2004121985

PATIENT
  Age: 67 Year
  Sex: Female
  Weight: 68.0396 kg

DRUGS (6)
  1. CELEBREX [Suspect]
     Indication: BACK DISORDER
     Dosage: 400 MG (200 MG, 2 IN 1 D), ORAL
     Route: 048
     Dates: end: 20041221
  2. GABAPENTIN [Concomitant]
  3. DILTIAZEM HYDROCHLORIDE [Concomitant]
  4. GLIPIZIDE [Concomitant]
  5. FUROSEMIDE [Concomitant]
  6. ACEBUTOLOL HCL [Concomitant]

REACTIONS (1)
  - TRANSIENT ISCHAEMIC ATTACK [None]
